FAERS Safety Report 4830181-7 (Version None)
Quarter: 2005Q4

REPORT INFORMATION
  Report Type: 
  Country: None (occurrence: None)
  Receive Date: 20051117
  Receipt Date: 20050928
  Transmission Date: 20060501
  Serious: Yes (Life-Threatening, Hospitalization, Disabling, Other)
  Sender: FDA-Public Use
  Company Number: US-MERCK-0509USA04585

PATIENT
  Age: 55 Year
  Sex: Male
  Weight: 84 kg

DRUGS (9)
  1. VYTORIN [Suspect]
     Indication: HYPERLIPIDAEMIA
     Route: 048
     Dates: start: 20041213, end: 20050824
  2. VYTORIN [Suspect]
     Indication: DYSLIPIDAEMIA
     Route: 048
     Dates: start: 20041213, end: 20050824
  3. GLIPIZIDE [Concomitant]
     Route: 048
  4. NIFEDIPINE [Concomitant]
     Route: 048
  5. AVANDIA [Concomitant]
     Route: 048
  6. HYDROCHLOROTHIAZIDE AND LISINOPRIL [Concomitant]
     Route: 048
     Dates: end: 20050824
  7. ZITHROMAX [Concomitant]
     Route: 065
     Dates: start: 20050801, end: 20050801
  8. NEXIUM [Concomitant]
     Route: 065
     Dates: end: 20050801
  9. [THERAPY UNSPECIFIED] [Suspect]
     Route: 065

REACTIONS (8)
  - BRONCHITIS [None]
  - CORONARY ARTERY DISEASE [None]
  - DERMATITIS [None]
  - ERECTILE DYSFUNCTION [None]
  - HYPOTENSION [None]
  - LIBIDO DECREASED [None]
  - MYOSITIS [None]
  - RENAL FAILURE ACUTE [None]
